FAERS Safety Report 14372520 (Version 1)
Quarter: 2018Q1

REPORT INFORMATION
  Report Type: Spontaneous
  Country: US (occurrence: US)
  Receive Date: 20180110
  Receipt Date: 20180110
  Transmission Date: 20180509
  Serious: No
  Sender: FDA-Public Use
  Company Number: US-009507513-1712USA005653

PATIENT
  Age: 72 Year
  Sex: Female
  Weight: 63.49 kg

DRUGS (5)
  1. LISINOPRIL. [Concomitant]
     Active Substance: LISINOPRIL
     Indication: HYPERTENSION
  2. BELSOMRA [Suspect]
     Active Substance: SUVOREXANT
     Indication: INSOMNIA
     Dosage: 10 MG, ORAL PILL
     Route: 048
  3. LORAZEPAN (LORAZEPAM) [Concomitant]
     Indication: ANXIETY
  4. BELSOMRA [Suspect]
     Active Substance: SUVOREXANT
     Dosage: TWO 10 MG TABLETS
     Route: 048
  5. AMBIEN [Suspect]
     Active Substance: ZOLPIDEM TARTRATE
     Dosage: FOR YEARS

REACTIONS (2)
  - Drug effect incomplete [Recovered/Resolved]
  - Amnesia [Unknown]
